FAERS Safety Report 6870922-0 (Version None)
Quarter: 2010Q3

REPORT INFORMATION
  Report Type: 
  Country: None (occurrence: None)
  Receive Date: 20100723
  Receipt Date: 20091201
  Transmission Date: 20110219
  Serious: Yes (Other)
  Sender: FDA-Public Use
  Company Number: PHHY2009NL66357

PATIENT
  Sex: Female

DRUGS (1)
  1. TASIGNA [Suspect]
     Dosage: 2X400 MG PER DAY
     Route: 048

REACTIONS (6)
  - CONCOMITANT DISEASE AGGRAVATED [None]
  - DISTURBANCE IN ATTENTION [None]
  - GAIT DISTURBANCE [None]
  - IMPATIENCE [None]
  - KNEE OPERATION [None]
  - OSTEOARTHRITIS [None]
